FAERS Safety Report 5519105-7 (Version None)
Quarter: 2007Q4

REPORT INFORMATION
  Report Type: 
  Country: None (occurrence: None)
  Receive Date: 20071114
  Receipt Date: 20071029
  Transmission Date: 20080405
  Serious: Yes (Hospitalization)
  Sender: FDA-Public Use
  Company Number: DSA_30823_2007

PATIENT
  Sex: Female

DRUGS (2)
  1. TEMESTA (TEMESTA - LORAZEPAM) (0.5 MG, 0.5 MG) (NOT SPECIFIED) [Suspect]
     Indication: SLEEP DISORDER
     Dosage: (0.5 MG QD ORAL), (0.5 MG QD ORAL)
     Route: 048
     Dates: start: 20020101, end: 20071001
  2. TEMESTA (TEMESTA - LORAZEPAM) (0.5 MG, 0.5 MG) (NOT SPECIFIED) [Suspect]
     Indication: SLEEP DISORDER
     Dosage: (0.5 MG QD ORAL), (0.5 MG QD ORAL)
     Route: 048
     Dates: start: 20071001

REACTIONS (3)
  - NAUSEA [None]
  - PALPITATIONS [None]
  - PHARMACEUTICAL PRODUCT COMPLAINT [None]
